FAERS Safety Report 4680625-9 (Version None)
Quarter: 2005Q2

REPORT INFORMATION
  Report Type: 
  Country: None (occurrence: None)
  Receive Date: 20050601
  Receipt Date: 20041027
  Transmission Date: 20051028
  Serious: No
  Sender: FDA-Public Use
  Company Number: APP200400815

PATIENT
  Age: 63 Year
  Sex: Female

DRUGS (1)
  1. PROTAMINE SULFATE [Suspect]
     Dosage: ONCE, INTRAVENOUS
     Route: 042
     Dates: start: 20041027, end: 20041027

REACTIONS (2)
  - BLOOD PRESSURE DECREASED [None]
  - PULMONARY ARTERIAL PRESSURE INCREASED [None]
